FAERS Safety Report 19648272 (Version 1)
Quarter: 2021Q3

REPORT INFORMATION
  Report Type: Spontaneous
  Country: CA (occurrence: CA)
  Receive Date: 20210802
  Receipt Date: 20210802
  Transmission Date: 20211014
  Serious: Yes (Death)
  Sender: FDA-Public Use
  Company Number: CA-PFIZER INC-2019484810

PATIENT
  Age: 29 Year
  Sex: Female

DRUGS (1)
  1. RAPAMUNE [Suspect]
     Active Substance: SIROLIMUS
     Indication: EWING^S SARCOMA
     Dosage: 2 MG, 1X/DAY
     Dates: start: 2019

REACTIONS (3)
  - Off label use [Unknown]
  - Product use in unapproved indication [Unknown]
  - Death [Fatal]
